FAERS Safety Report 20170265 (Version 2)
Quarter: 2022Q4

REPORT INFORMATION
  Report Type: Spontaneous
  Country: US (occurrence: US)
  Receive Date: 20211210
  Receipt Date: 20221222
  Transmission Date: 20230112
  Serious: Yes (Hospitalization)
  Sender: FDA-Public Use
  Company Number: US-MLMSERVICE-20211201-3253783-1

PATIENT
  Age: 25 Year
  Sex: Male

DRUGS (2)
  1. RISPERIDONE [Suspect]
     Active Substance: RISPERIDONE
     Indication: Aggression
     Dosage: TITRATED TO 1 MG NIGHTLY
     Route: 065
     Dates: start: 202008
  2. VALPROIC ACID [Concomitant]
     Active Substance: VALPROIC ACID
     Indication: Intermittent explosive disorder
     Dosage: UNKNOWN
     Route: 065
     Dates: start: 202003

REACTIONS (2)
  - Akathisia [Unknown]
  - Aggression [Recovered/Resolved]

NARRATIVE: CASE EVENT DATE: 20200101
